FAERS Safety Report 24902238 (Version 2)
Quarter: 2025Q1

REPORT INFORMATION
  Report Type: Spontaneous
  Country: EC (occurrence: EC)
  Receive Date: 20250130
  Receipt Date: 20250212
  Transmission Date: 20250409
  Serious: Yes (Other)
  Sender: VERITY PHARMACEUTICALS INC.
  Company Number: EC-VER-202500001

PATIENT
  Age: 73 Year
  Sex: Male

DRUGS (2)
  1. TRIPTORELIN PAMOATE [Suspect]
     Active Substance: TRIPTORELIN PAMOATE
     Indication: Prostate cancer
     Route: 065
     Dates: start: 20240807
  2. TRIPTORELIN PAMOATE [Suspect]
     Active Substance: TRIPTORELIN PAMOATE
     Indication: Prostate cancer
     Route: 065
     Dates: start: 20241109

REACTIONS (2)
  - Therapeutic response changed [Not Recovered/Not Resolved]
  - Blood testosterone normal [Not Recovered/Not Resolved]

NARRATIVE: CASE EVENT DATE: 20250101
